FAERS Safety Report 13304673 (Version 1)
Quarter: 2017Q1

REPORT INFORMATION
  Report Type: Spontaneous
  Country: US (occurrence: US)
  Receive Date: 20170307
  Receipt Date: 20170307
  Transmission Date: 20170428
  Serious: Yes (Disabling, Other)
  Sender: FDA-Public Use
  Company Number: None

PATIENT
  Age: 65 Year
  Sex: Female
  Weight: 64.35 kg

DRUGS (1)
  1. OXYBUTININ [Suspect]
     Active Substance: OXYBUTYNIN
     Indication: HYPERTONIC BLADDER
     Route: 048

REACTIONS (2)
  - Amnesia [None]
  - Product label issue [None]

NARRATIVE: CASE EVENT DATE: 20170307
